FAERS Safety Report 4363443-0 (Version None)
Quarter: 2004Q2

REPORT INFORMATION
  Report Type: 
  Country: None (occurrence: None)
  Receive Date: 20040524
  Receipt Date: 20040517
  Transmission Date: 20050107
  Serious: Yes (Hospitalization)
  Sender: FDA-Public Use
  Company Number: FR-GLAXOSMITHKLINE-B0332940A

PATIENT
  Age: 55 Year
  Sex: Female

DRUGS (3)
  1. ZOVIRAX [Suspect]
  2. BENZODIAZEPINE [Suspect]
     Route: 048
  3. DEPAMIDE [Suspect]
     Route: 048

REACTIONS (2)
  - COMA [None]
  - SUICIDE ATTEMPT [None]
